FAERS Safety Report 6257394-4 (Version None)
Quarter: 2009Q3

REPORT INFORMATION
  Report Type: 
  Country: None (occurrence: None)
  Receive Date: 20090701
  Receipt Date: 20090701
  Transmission Date: 20100115
  Serious: Yes (Life-Threatening, Other)
  Sender: FDA-Public Use
  Company Number: None

PATIENT
  Age: 45 Year
  Sex: Female
  Weight: 61.2356 kg

DRUGS (1)
  1. TOPIRAMATE [Suspect]
     Indication: EPILEPSY
     Dosage: 200MG 1X DAILY PO
     Route: 048
     Dates: start: 20090501, end: 20090601

REACTIONS (6)
  - CONVULSION [None]
  - ECONOMIC PROBLEM [None]
  - IMPAIRED DRIVING ABILITY [None]
  - JOINT DISLOCATION [None]
  - JOINT INJURY [None]
  - PRODUCT SUBSTITUTION ISSUE [None]
